FAERS Safety Report 22006680 (Version 4)
Quarter: 2024Q1

REPORT INFORMATION
  Report Type: Spontaneous
  Country: US (occurrence: US)
  Receive Date: 20230217
  Receipt Date: 20240112
  Transmission Date: 20240409
  Serious: Yes (Other)
  Sender: FDA-Public Use
  Company Number: US-BRISTOL-MYERS SQUIBB COMPANY-2023-024027

PATIENT
  Age: 70 Year
  Sex: Female

DRUGS (2)
  1. POMALYST [Suspect]
     Active Substance: POMALIDOMIDE
     Indication: Plasma cell myeloma
     Route: 048
     Dates: start: 20230217
  2. POMALYST [Suspect]
     Active Substance: POMALIDOMIDE
     Dosage: TAKE 1 CAPSULE (2 MG) BY MOUTH ONCE DAILY FOR 21 DAYS THEN TAKE 7 DAYS OFF. SWALLOW WHOLE WITH WATER
     Route: 048
     Dates: start: 20230818

REACTIONS (3)
  - Infection [Unknown]
  - Platelet count decreased [Unknown]
  - Pneumonia [Unknown]
